FAERS Safety Report 7930713-6 (Version None)
Quarter: 2011Q4

REPORT INFORMATION
  Report Type: 
  Country: None (occurrence: None)
  Receive Date: 20111121
  Receipt Date: 20111109
  Transmission Date: 20120403
  Serious: Yes (Life-Threatening, Hospitalization, Other)
  Sender: FDA-Public Use
  Company Number: JP-SANOFI-AVENTIS-2011SA023322

PATIENT
  Age: 81 Year
  Sex: Male
  Weight: 49.5 kg

DRUGS (10)
  1. MUCOSOLVAN [Concomitant]
     Indication: EMPHYSEMA
     Route: 048
     Dates: start: 20080613
  2. METHY F [Concomitant]
     Route: 048
     Dates: start: 20081128
  3. DIAZOXIDE [Concomitant]
     Indication: TYPE 2 DIABETES MELLITUS
     Route: 048
     Dates: start: 20080723
  4. LANSOPRAZOLE [Concomitant]
     Route: 048
     Dates: start: 20110302
  5. TAMSULOSIN HYDROCHLORIDE [Concomitant]
     Route: 048
     Dates: start: 20110302
  6. PIOGLITAZONE HYDROCHLORIDE [Concomitant]
     Route: 065
  7. AMARYL [Suspect]
     Route: 065
  8. NIPOLAZIN [Concomitant]
     Route: 048
     Dates: start: 20080911
  9. FERROUS CITRATE [Concomitant]
     Route: 048
     Dates: start: 20101015
  10. METFORMIN HCL [Concomitant]
     Route: 065

REACTIONS (4)
  - HYPOGLYCAEMIC UNCONSCIOUSNESS [None]
  - HYPOXIC-ISCHAEMIC ENCEPHALOPATHY [None]
  - CARDIO-RESPIRATORY ARREST [None]
  - MEDICATION ERROR [None]
